FAERS Safety Report 11933339 (Version 1)
Quarter: 2016Q1

REPORT INFORMATION
  Report Type: Spontaneous
  Country: FR (occurrence: FR)
  Receive Date: 20160121
  Receipt Date: 20160121
  Transmission Date: 20160526
  Serious: Yes (Hospitalization)
  Sender: FDA-Public Use
  Company Number: FR-ROCHE-1697656

PATIENT
  Age: 59 Year
  Sex: Male

DRUGS (5)
  1. IKOREL [Concomitant]
     Active Substance: NICORANDIL
  2. KARDEGIC [Concomitant]
     Active Substance: ASPIRIN LYSINE
  3. INEXIUM [Concomitant]
     Active Substance: ESOMEPRAZOLE
  4. CRESTOR [Concomitant]
     Active Substance: ROSUVASTATIN CALCIUM
  5. ROACTEMRA [Suspect]
     Active Substance: TOCILIZUMAB
     Indication: RHEUMATOID ARTHRITIS
     Route: 041
     Dates: start: 20151126, end: 20151126

REACTIONS (3)
  - Chest pain [Recovered/Resolved]
  - Malaise [Recovered/Resolved]
  - Hypertension [Recovered/Resolved]

NARRATIVE: CASE EVENT DATE: 20151127
